FAERS Safety Report 4635205-8 (Version None)
Quarter: 2005Q2

REPORT INFORMATION
  Report Type: 
  Country: None (occurrence: None)
  Receive Date: 20050414
  Receipt Date: 20050405
  Transmission Date: 20051028
  Serious: Yes (Hospitalization)
  Sender: FDA-Public Use
  Company Number: US-JNJFOC-20050401518

PATIENT
  Age: 83 Year
  Sex: Female

DRUGS (6)
  1. RISPERDAL [Suspect]
     Indication: DEMENTIA
     Route: 049
  2. NAMENDA [Concomitant]
     Route: 049
  3. ARICEPT [Concomitant]
     Route: 049
  4. DILANTIN [Concomitant]
  5. SOTOLOL [Concomitant]
     Indication: HEART RATE IRREGULAR
     Route: 049
  6. ESCITALOPRAM [Concomitant]

REACTIONS (5)
  - CEREBROVASCULAR ACCIDENT [None]
  - CONVULSION [None]
  - FALL [None]
  - HEART RATE IRREGULAR [None]
  - TRANSIENT ISCHAEMIC ATTACK [None]
